FAERS Safety Report 12315697 (Version 1)
Quarter: 2016Q2

REPORT INFORMATION
  Report Type: Spontaneous
  Country: US (occurrence: US)
  Receive Date: 20160428
  Receipt Date: 20160428
  Transmission Date: 20160815
  Serious: Yes (Hospitalization, Other)
  Sender: FDA-Public Use
  Company Number: US-MYLANLABS-2016M1016316

PATIENT

DRUGS (5)
  1. COUMADIN [Concomitant]
     Active Substance: WARFARIN SODIUM
     Indication: TRANSIENT ISCHAEMIC ATTACK
     Dosage: 7.5 MG, QD
     Route: 048
     Dates: start: 2006
  2. CHLORTALIDONE [Suspect]
     Active Substance: CHLORTHALIDONE
     Indication: NEPHROLITHIASIS
     Dosage: 50 MG, UNK
     Dates: start: 200901, end: 201602
  3. TIKOSYN [Suspect]
     Active Substance: DOFETILIDE
     Indication: ATRIAL FIBRILLATION
     Dosage: 250 ?G, BID
     Route: 048
     Dates: start: 200211
  4. AMILORIDE [Concomitant]
     Active Substance: AMILORIDE
     Indication: DIURETIC THERAPY
     Dosage: 5 MG, QD
     Route: 048
     Dates: start: 200901
  5. CARTIA XT [Concomitant]
     Active Substance: DILTIAZEM HYDROCHLORIDE
     Indication: HEART RATE
     Dosage: 180 MG, QD
     Route: 048
     Dates: start: 2009

REACTIONS (2)
  - Nephrolithiasis [Recovering/Resolving]
  - Atrial fibrillation [Unknown]

NARRATIVE: CASE EVENT DATE: 200907
